FAERS Safety Report 11663724 (Version 2)
Quarter: 2018Q1

REPORT INFORMATION
  Report Type: Spontaneous
  Country: US (occurrence: US)
  Receive Date: 20151027
  Receipt Date: 20180323
  Transmission Date: 20180508
  Serious: No
  Sender: FDA-Public Use
  Company Number: US-ASTRAZENECA-2015SE99073

PATIENT
  Age: 54 Year
  Sex: Female
  Weight: 72.6 kg

DRUGS (1)
  1. TUDORZA PRESSAIR [Suspect]
     Active Substance: ACLIDINIUM BROMIDE
     Indication: EMPHYSEMA
     Dosage: 1 PUFF TWICE A DAY
     Route: 055
     Dates: start: 20151007

REACTIONS (4)
  - Dyspnoea [Unknown]
  - Drug dose omission [Unknown]
  - Device failure [Unknown]
  - Device malfunction [Unknown]

NARRATIVE: CASE EVENT DATE: 201510
